FAERS Safety Report 8835111 (Version 3)
Quarter: 2012Q4

REPORT INFORMATION
  Report Type: 
  Country: US (occurrence: US)
  Receive Date: 20121011
  Receipt Date: 20121119
  Transmission Date: 20130627
  Serious: No
  Sender: FDA-Public Use
  Company Number: US-PFIZER INC-2012248825

PATIENT
  Age: 79 Year
  Sex: Female
  Weight: 66.21 kg

DRUGS (20)
  1. TORISEL [Suspect]
     Indication: CANCER (NOS)
     Dosage: UNK
     Dates: end: 20120904
  2. LISINOPRIL [Concomitant]
     Dosage: UNK
  3. LABETALOL [Concomitant]
     Dosage: 300 mg, 3x/day
  4. LABETALOL [Concomitant]
     Dosage: 300 mg, 3x/day
  5. KLOR-CON [Concomitant]
     Dosage: UNK
  6. METOLAZONE [Concomitant]
     Dosage: 5 mg, every other day
  7. GLIMEPIRIDE [Concomitant]
     Dosage: UNK
  8. LOVASTATIN [Concomitant]
     Dosage: 40 mg, at bedtime
  9. LOVASTATIN [Concomitant]
     Dosage: 40 mg, at bedtime
  10. OMEPRAZOLE [Concomitant]
     Dosage: 2 DF, 2x/day
  11. OMEPRAZOLE [Concomitant]
     Dosage: two tabs BID
  12. HYDROCODONE [Concomitant]
     Dosage: UNK, as needed
  13. HYDROCODONE [Concomitant]
     Dosage: UNK,as needed
  14. PROCHLORPERAZINE [Concomitant]
     Dosage: UNK, as needed
  15. MIRALAX [Concomitant]
     Dosage: UNK, as needed
  16. ASPIRIN [Concomitant]
     Dosage: 81 mg, UNK
  17. ARANESP [Concomitant]
     Indication: HEMOGLOBIN DECREASED
     Dosage: UNK
     Route: 042
  18. ALISKIREN/HYDROCHLOROTHIAZIDE [Concomitant]
     Dosage: UNK
  19. AMLODIPINE [Concomitant]
     Dosage: 5 mg, UNK
  20. SENOKOT [Concomitant]
     Dosage: UNK

REACTIONS (2)
  - Disease progression [Unknown]
  - Neoplasm malignant [Unknown]
